FAERS Safety Report 4714747-0 (Version None)
Quarter: 2005Q3

REPORT INFORMATION
  Report Type: 
  Country: None (occurrence: None)
  Receive Date: 20050713
  Receipt Date: 20050628
  Transmission Date: 20060218
  Serious: Yes (Hospitalization)
  Sender: FDA-Public Use
  Company Number: 2004BI000550

PATIENT
  Age: 47 Year
  Sex: Female
  Weight: 59.8748 kg

DRUGS (10)
  1. AVONEX [Suspect]
     Indication: MULTIPLE SCLEROSIS
     Dosage: 30 UG; QW; IM
     Route: 030
     Dates: start: 19990203, end: 20040801
  2. AVONEX [Suspect]
     Indication: MULTIPLE SCLEROSIS
     Dosage: 30 UG; QW; IM
     Route: 030
     Dates: start: 20040801
  3. PREMPRO [Concomitant]
  4. CELEXA [Concomitant]
  5. OXYBUTYNIN [Concomitant]
  6. PREVACID [Concomitant]
  7. ALPRAZOLAM [Concomitant]
  8. AMANTADINE [Concomitant]
  9. SYNTHROID [Concomitant]
  10. FIORINAL [Concomitant]

REACTIONS (7)
  - ASTHENIA [None]
  - BALANCE DISORDER [None]
  - BODY HEIGHT DECREASED [None]
  - CONDITION AGGRAVATED [None]
  - FALL [None]
  - MENSTRUAL DISORDER [None]
  - MULTIPLE SCLEROSIS [None]
